FAERS Safety Report 5734577-0 (Version None)
Quarter: 2008Q2

REPORT INFORMATION
  Report Type: 
  Country: None (occurrence: None)
  Receive Date: 20080512
  Receipt Date: 20080403
  Transmission Date: 20081010
  Serious: No
  Sender: FDA-Public Use
  Company Number: FR-PFIZER INC-2007000080

PATIENT
  Age: 6 Year
  Sex: Female

DRUGS (4)
  1. VIRACEPT [Suspect]
     Route: 048
  2. VIDEX [Suspect]
     Dosage: DAILY DOSE:250MG
     Route: 048
  3. ZERIT [Suspect]
     Route: 048
  4. RETROVIR [Suspect]
     Route: 042

REACTIONS (1)
  - NO ADVERSE EVENT [None]
